FAERS Safety Report 10010106 (Version 1)
Quarter: 2014Q1

REPORT INFORMATION
  Report Type: Spontaneous
  Country: US (occurrence: US)
  Receive Date: 20140312
  Receipt Date: 20140312
  Transmission Date: 20141002
  Serious: No
  Sender: FDA-Public Use
  Company Number: US-INCYTE CORPORATION-2013IN001283

PATIENT
  Sex: Male

DRUGS (5)
  1. JAKAFI [Suspect]
     Indication: BLOOD DISORDER
     Dosage: 20 MG, BID
     Route: 048
     Dates: start: 201112
  2. SYNTHROID [Concomitant]
  3. BYSTOLIC [Concomitant]
  4. ALLOPURINOL [Concomitant]
  5. BUPROPION HCL ER [Concomitant]

REACTIONS (1)
  - Drug dose omission [Unknown]
